FAERS Safety Report 4832191-2 (Version None)
Quarter: 2005Q4

REPORT INFORMATION
  Report Type: 
  Country: None (occurrence: None)
  Receive Date: 20051118
  Receipt Date: 20051003
  Transmission Date: 20060501
  Serious: Yes (Hospitalization, Other)
  Sender: FDA-Public Use
  Company Number: US-MERCK-0510USA01992

PATIENT
  Age: 64 Year
  Sex: Female
  Weight: 91 kg

DRUGS (10)
  1. VIOXX [Suspect]
     Indication: OSTEOARTHRITIS
     Route: 048
     Dates: start: 20011214, end: 20040601
  2. AVANDIA [Concomitant]
     Route: 065
  3. CLONIDINE [Concomitant]
     Route: 065
  4. COZAAR [Concomitant]
     Route: 065
  5. DICLOFENAC [Concomitant]
     Route: 065
  6. DILTIAZEM MALATE [Concomitant]
     Route: 065
  7. GLIPIZIDE [Concomitant]
     Route: 065
  8. METFORMIN [Concomitant]
     Route: 065
  9. SYNTHROID [Concomitant]
     Route: 065
  10. ZOCOR [Concomitant]
     Route: 065

REACTIONS (23)
  - ABSCESS LIMB [None]
  - ANXIETY [None]
  - ARTERIOSCLEROSIS CORONARY ARTERY [None]
  - CARDIAC DISORDER [None]
  - CELLULITIS [None]
  - CHEST PAIN [None]
  - CORONARY ARTERY OCCLUSION [None]
  - CORONARY ARTERY STENOSIS [None]
  - DEPRESSION [None]
  - DIABETES MELLITUS INADEQUATE CONTROL [None]
  - DRUG ADMINISTRATION ERROR [None]
  - ELECTROCARDIOGRAM ABNORMAL [None]
  - FACIAL PALSY [None]
  - HAEMODYNAMIC INSTABILITY [None]
  - HEPATIC STEATOSIS [None]
  - HYPERTENSION [None]
  - INSOMNIA [None]
  - MYOCARDIAL INFARCTION [None]
  - MYOCARDIAL ISCHAEMIA [None]
  - OEDEMA [None]
  - POSTOPERATIVE INFECTION [None]
  - RASH [None]
  - VENTRICULAR HYPOKINESIA [None]
